FAERS Safety Report 6106081-1 (Version None)
Quarter: 2009Q1

REPORT INFORMATION
  Report Type: 
  Country: None (occurrence: None)
  Receive Date: 20090306
  Receipt Date: 20090303
  Transmission Date: 20090719
  Serious: No
  Sender: FDA-Public Use
  Company Number: JP-EISAI MEDICAL RESEARCH-E2020-04235-SPO-JP

PATIENT
  Age: 82 Year
  Sex: Female

DRUGS (4)
  1. ARICEPT [Suspect]
     Indication: DEMENTIA ALZHEIMER'S TYPE
     Route: 048
     Dates: end: 20090129
  2. ARICEPT [Suspect]
     Route: 048
     Dates: start: 20090130, end: 20090201
  3. ARICEPT [Suspect]
     Dosage: 15 MG (10 MG TABLET AND 5 MG TABLET)
     Route: 048
     Dates: start: 20090202, end: 20090202
  4. ARICEPT [Suspect]
     Route: 048
     Dates: start: 20090101

REACTIONS (2)
  - ALTERED STATE OF CONSCIOUSNESS [None]
  - OVERDOSE [None]
